FAERS Safety Report 9736059 (Version 1)
Quarter: 2013Q4

REPORT INFORMATION
  Report Type: Spontaneous
  Country: US (occurrence: None)
  Receive Date: 20131205
  Receipt Date: 20131205
  Transmission Date: 20140711
  Serious: No
  Sender: FDA-Public Use
  Company Number: None

PATIENT
  Sex: Male

DRUGS (9)
  1. TEMODAR [Suspect]
     Route: 048
     Dates: start: 20131010
  2. KEPPRA [Concomitant]
  3. VIMPAT [Concomitant]
  4. PHENOBARBITAL [Concomitant]
  5. XYZAL [Concomitant]
  6. ZESTORETIC [Concomitant]
  7. CIPRO [Concomitant]
  8. DEXAMETHASONE 4MG/ML INJECTION [Concomitant]
  9. CHLORPHENIRAMINC [Concomitant]

REACTIONS (1)
  - Thrombosis [None]
